FAERS Safety Report 19217062 (Version 1)
Quarter: 2021Q2

REPORT INFORMATION
  Report Type: Spontaneous
  Country: FR (occurrence: FR)
  Receive Date: 20210505
  Receipt Date: 20210505
  Transmission Date: 20210717
  Serious: Yes (Hospitalization, Other)
  Sender: FDA-Public Use
  Company Number: FR-MACLEODS PHARMACEUTICALS US LTD-MAC2021031041

PATIENT

DRUGS (3)
  1. TACROLIMUS. [Suspect]
     Active Substance: TACROLIMUS
     Indication: IMMUNOSUPPRESSANT DRUG THERAPY
     Dosage: UNK
     Route: 065
     Dates: start: 2019, end: 20200201
  2. ACETYLSALICYLIC ACID [Concomitant]
     Active Substance: ASPIRIN
     Indication: HEPATIC ARTERY STENOSIS
     Dosage: 75 MILLIGRAM
     Route: 065
     Dates: start: 2019
  3. PANTOPRAZOLE SODIUM. [Suspect]
     Active Substance: PANTOPRAZOLE SODIUM
     Indication: HEPATIC ARTERY STENOSIS
     Dosage: 20 MILLIGRAM
     Route: 065
     Dates: start: 2019, end: 20200201

REACTIONS (7)
  - Drug level increased [Recovered/Resolved]
  - Intervertebral discitis [Recovered/Resolved]
  - Oligoarthritis [Recovered/Resolved]
  - Condition aggravated [Recovered/Resolved]
  - Product administration error [Recovered/Resolved]
  - Chondrocalcinosis pyrophosphate [Recovered/Resolved]
  - Hypomagnesaemia [Recovered/Resolved]

NARRATIVE: CASE EVENT DATE: 202001
